FAERS Safety Report 7470197-8 (Version None)
Quarter: 2011Q2

REPORT INFORMATION
  Report Type: 
  Country: None (occurrence: None)
  Receive Date: 20110506
  Receipt Date: 20110506
  Transmission Date: 20111010
  Serious: Yes (Hospitalization)
  Sender: FDA-Public Use
  Company Number: None

PATIENT
  Age: 74 Year
  Sex: Female
  Weight: 56.4728 kg

DRUGS (3)
  1. OXALIPLATIN [Suspect]
     Indication: BILE DUCT CANCER
     Dosage: 1135MG EVERY 2 WEEKS IV
     Route: 042
     Dates: start: 20101109, end: 20110322
  2. ERLOTINIB HYDROCHLORIDE [Suspect]
     Indication: BILE DUCT CANCER
     Dosage: 50MG PO DAYS 3-8 + 17-22
     Route: 048
     Dates: start: 20101110, end: 20110409
  3. GEMCITABINE [Suspect]
     Indication: BILE DUCT CANCER
     Dosage: 1043MG EVERY 2 WEEKS IV
     Route: 042
     Dates: start: 20101108, end: 20110404

REACTIONS (4)
  - FATIGUE [None]
  - BONE PAIN [None]
  - PYREXIA [None]
  - METASTASES TO LUNG [None]
